FAERS Safety Report 16493023 (Version 1)
Quarter: 2019Q2

REPORT INFORMATION
  Report Type: Spontaneous
  Country: US (occurrence: US)
  Receive Date: 20190628
  Receipt Date: 20190628
  Transmission Date: 20190711
  Serious: No
  Sender: FDA-Public Use
  Company Number: US-GLAXOSMITHKLINE-US2019114903

PATIENT
  Age: 58 Year
  Sex: Female

DRUGS (2)
  1. ABREVA [Suspect]
     Active Substance: DOCOSANOL
     Dosage: UNK, ON THURSDAY 3 TIMES
     Dates: start: 20190619, end: 20190622
  2. ABREVA [Suspect]
     Active Substance: DOCOSANOL
     Indication: ORAL HERPES
     Dosage: UNK, ON THURSDAY 3 TIMES
     Dates: start: 20190619, end: 20190622

REACTIONS (4)
  - Dyspnoea [Unknown]
  - Peripheral swelling [Unknown]
  - Swelling face [Unknown]
  - Inappropriate schedule of product administration [Unknown]

NARRATIVE: CASE EVENT DATE: 20190621
